FAERS Safety Report 4811200-0 (Version None)
Quarter: 2005Q4

REPORT INFORMATION
  Report Type: 
  Country: None (occurrence: None)
  Receive Date: 20051027
  Receipt Date: 20050114
  Transmission Date: 20060501
  Serious: Yes (Death, Hospitalization)
  Sender: FDA-Public Use
  Company Number: RU-SOLVAY-00205003416

PATIENT
  Age: 29605 Day
  Sex: Male
  Weight: 70 kg

DRUGS (2)
  1. PERINDOPRIL [Suspect]
     Indication: CARDIAC FAILURE CONGESTIVE
     Dosage: DAILY DOSE: 4 MILLIGRAM(S)
     Route: 048
     Dates: end: 20030508
  2. CONCOR [Concomitant]
     Indication: ILL-DEFINED DISORDER
     Dosage: DAILY DOSE:  UNKNOWN
     Route: 065
     Dates: start: 20020620

REACTIONS (3)
  - ATRIAL FIBRILLATION [None]
  - INTESTINAL OBSTRUCTION [None]
  - VENTRICULAR FAILURE [None]
